FAERS Safety Report 20354469 (Version 1)
Quarter: 2022Q1

REPORT INFORMATION
  Report Type: Spontaneous
  Country: US (occurrence: US)
  Receive Date: 20220120
  Receipt Date: 20220120
  Transmission Date: 20220423
  Serious: No
  Sender: FDA-Public Use
  Company Number: US-ALLERGAN-2131391US

PATIENT

DRUGS (1)
  1. ALORA [Suspect]
     Active Substance: ESTRADIOL
     Indication: Product used for unknown indication
     Dosage: 1 DF, BI-WEEKLY
     Route: 062

REACTIONS (3)
  - Application site pruritus [Unknown]
  - Product adhesion issue [Unknown]
  - Product quality issue [Unknown]
